FAERS Safety Report 5810500-5 (Version None)
Quarter: 2008Q3

REPORT INFORMATION
  Report Type: 
  Country: None (occurrence: None)
  Receive Date: 20080715
  Receipt Date: 20080710
  Transmission Date: 20090109
  Serious: Yes (Hospitalization, Disabling)
  Sender: FDA-Public Use
  Company Number: GB-ASTRAZENECA-2008GB01324

PATIENT
  Age: 14 Year
  Sex: Female
  Weight: 88 kg

DRUGS (3)
  1. ROPIVACAINE HYDROCHLORIDE [Suspect]
     Indication: POSTOPERATIVE ANALGESIA
     Route: 008
     Dates: start: 20080527, end: 20080529
  2. DIAMORPHINE [Suspect]
     Indication: POSTOPERATIVE ANALGESIA
     Route: 065
     Dates: start: 20080527, end: 20080529
  3. ENOXAPARIN SODIUM [Concomitant]
     Route: 065

REACTIONS (1)
  - SPINAL CORD INJURY [None]
